FAERS Safety Report 26190029 (Version 1)
Quarter: 2025Q4

REPORT INFORMATION
  Report Type: Spontaneous
  Country: US (occurrence: US)
  Receive Date: 20251223
  Receipt Date: 20251223
  Transmission Date: 20260118
  Serious: No
  Sender: LEO PHARM
  Company Number: US-LEO Pharma-385024

PATIENT
  Age: 69 Year
  Sex: Male

DRUGS (2)
  1. CALCIPOTRIENE [Suspect]
     Active Substance: CALCIPOTRIENE
     Indication: Psoriasis
     Dosage: EXPIRATION DATE - SEP-2026?ONCE OR TWICE A DAY FOR ABOUT THE LAST WEEK
  2. KETOCONAZOLE [Suspect]
     Active Substance: KETOCONAZOLE
     Indication: Product used for unknown indication

REACTIONS (3)
  - Skin burning sensation [Unknown]
  - Rash [Unknown]
  - Sleep disorder [Unknown]
